FAERS Safety Report 5008927-7 (Version None)
Quarter: 2006Q2

REPORT INFORMATION
  Report Type: 
  Country: None (occurrence: None)
  Receive Date: 20060518
  Receipt Date: 20060505
  Transmission Date: 20061013
  Serious: Yes (Death)
  Sender: FDA-Public Use
  Company Number: 2006BI006782

PATIENT
  Sex: Female

DRUGS (2)
  1. ZEVALIN [Suspect]
     Dosage: IV
     Route: 042
     Dates: start: 20040101, end: 20040101
  2. RITUXIMAB [Concomitant]

REACTIONS (1)
  - DEATH [None]
